FAERS Safety Report 20834081 (Version 3)
Quarter: 2024Q3

REPORT INFORMATION
  Report Type: Spontaneous
  Country: US (occurrence: US)
  Receive Date: 20220516
  Receipt Date: 20240906
  Transmission Date: 20241017
  Serious: Yes (Other)
  Sender: PFIZER
  Company Number: US-PFIZER INC-202101639365

PATIENT
  Age: 62 Year
  Sex: Female

DRUGS (4)
  1. TIKOSYN [Suspect]
     Active Substance: DOFETILIDE
     Dosage: 500 UG
  2. TIKOSYN [Suspect]
     Active Substance: DOFETILIDE
     Dosage: TAKE TWO CAPSULES EVERY 12 HOURS
     Route: 048
  3. TIKOSYN [Suspect]
     Active Substance: DOFETILIDE
     Dosage: 165 UG (TAKE TWO CAPSULES EVERY 12 HOURS)
     Route: 048
  4. TIKOSYN [Suspect]
     Active Substance: DOFETILIDE
     Dosage: 125 MCG TAKE TWO TABLETS

REACTIONS (7)
  - Cardiomyopathy [Unknown]
  - Ventricular hypokinesia [Unknown]
  - Left ventricular dilatation [Unknown]
  - Ejection fraction decreased [Unknown]
  - Left ventricular end-diastolic pressure increased [Unknown]
  - Wrong strength [Unknown]
  - Product supply issue [Unknown]
